FAERS Safety Report 9062169 (Version 1)
Quarter: 2013Q1

REPORT INFORMATION
  Report Type: Spontaneous
  Country: IT (occurrence: IT)
  Receive Date: 20130127
  Receipt Date: 20130127
  Transmission Date: 20140127
  Serious: Yes (Other)
  Sender: FDA-Public Use
  Company Number: IT-TEVA-381732ISR

PATIENT
  Age: 24 Year
  Sex: Male

DRUGS (2)
  1. AMOXICILLINA TRIIDRATA/POTASSIO CLAVULANATO [Suspect]
     Indication: LUNG DISORDER
     Dosage: 3 GRAM DAILY;
     Route: 048
     Dates: start: 20121019, end: 20121026
  2. COUMADIN [Concomitant]

REACTIONS (2)
  - Alanine aminotransferase increased [Not Recovered/Not Resolved]
  - Aspartate aminotransferase increased [Not Recovered/Not Resolved]
